FAERS Safety Report 9428164 (Version 1)
Quarter: 2013Q3

REPORT INFORMATION
  Report Type: Spontaneous
  Country: US (occurrence: US)
  Receive Date: 20130730
  Receipt Date: 20130730
  Transmission Date: 20140515
  Serious: No
  Sender: FDA-Public Use
  Company Number: US-ABBOTT-12P-163-0993793-00

PATIENT
  Age: 70 Year
  Sex: Male
  Weight: 83.99 kg

DRUGS (6)
  1. NIASPAN (COATED) [Suspect]
     Indication: BLOOD CHOLESTEROL INCREASED
     Dates: start: 201107, end: 201110
  2. NIASPAN (COATED) [Suspect]
     Dates: start: 201110, end: 201201
  3. NIASPAN (COATED) [Suspect]
     Dates: start: 201201, end: 201204
  4. NIASPAN (COATED) [Suspect]
     Dates: start: 201204
  5. CRESTOR [Concomitant]
     Indication: BLOOD CHOLESTEROL INCREASED
  6. COREG [Concomitant]
     Indication: HYPERTENSION

REACTIONS (3)
  - Erythema [Recovered/Resolved]
  - Eczema [Unknown]
  - Rash [Not Recovered/Not Resolved]
